FAERS Safety Report 8805532 (Version 2)
Quarter: 2015Q2

REPORT INFORMATION
  Report Type: Report from Study
  Country: US (occurrence: US)
  Receive Date: 20120924
  Receipt Date: 20150617
  Transmission Date: 20150821
  Serious: Yes (Death)
  Sender: FDA-Public Use
  Company Number: US-ROCHE-1104496

PATIENT
  Sex: Female
  Weight: 170 kg

DRUGS (6)
  1. AVASTIN [Suspect]
     Active Substance: BEVACIZUMAB
     Indication: BREAST CANCER FEMALE
     Dosage: THERAPIES RECEIVED ON 22/FEB/2007, 08/MAR/2007, 22/MAR/2007, 05/APR/2007, 07/SEP/2007, 27/SEP/2007,
     Route: 042
     Dates: start: 20070209
  2. DECADRON [Concomitant]
     Active Substance: DEXAMETHASONE
     Dosage: THERAPIES RECEIVED ON 22/FEB/2007, 08/MAR/2007,22/MAR/2007, 05/APR/2007
     Route: 065
  3. HEPARIN [Concomitant]
     Active Substance: HEPARIN SODIUM
     Dosage: THERAPIES RECEIVED ON 08/AUG/2006, 02/NOV/2006, 05/DEC/2006, 04/JAN/2007, 15/FEB/2007, 22/FEB/2007,
     Route: 065
  4. ABRAXANE [Concomitant]
     Active Substance: PACLITAXEL
     Dosage: THERAPIES RECEIVED ON 15/FEB/2007, 22/FEB/2007, 08/MAR/2007, 15/MAR/2007, 22/MAR/2007, 05/APR/2007
     Route: 065
  5. ZOMETA [Concomitant]
     Active Substance: ZOLEDRONIC ACID
     Dosage: THERAPIES RECEIVED ON 02/NOV/2006, 05/DEC/2006, 04/JAN/2007, 15/FEB/2007, 15/MAR/2007
     Route: 065
  6. BENADRYL [Concomitant]
     Active Substance: DIPHENHYDRAMINE HYDROCHLORIDE
     Dosage: THERAPIES RECEIVED ON 22/FEB/2007, 08/MAR/2007,22/MAR/2007, 05/APR/2007
     Route: 065

REACTIONS (2)
  - Death [Fatal]
  - Off label use [Unknown]
